FAERS Safety Report 17693714 (Version 1)
Quarter: 2020Q2

REPORT INFORMATION
  Report Type: Spontaneous
  Country: CH (occurrence: CH)
  Receive Date: 20200422
  Receipt Date: 20200422
  Transmission Date: 20200714
  Serious: Yes (Other)
  Sender: FDA-Public Use
  Company Number: CH-PFIZER INC-2020157573

PATIENT
  Age: 42 Year
  Sex: Female

DRUGS (4)
  1. MIANSERINE [MIANSERIN HYDROCHLORIDE] [Suspect]
     Active Substance: MIANSERIN HYDROCHLORIDE
     Dosage: 30 MG, DAILY
     Route: 048
     Dates: start: 20190603
  2. XANAX [Suspect]
     Active Substance: ALPRAZOLAM
     Dosage: 2 TB/DAY
     Route: 048
     Dates: end: 201906
  3. FOCALIN [Suspect]
     Active Substance: DEXMETHYLPHENIDATE HYDROCHLORIDE
     Dosage: 5 MG, DAILY
     Route: 048
     Dates: start: 201905
  4. XANAX [Suspect]
     Active Substance: ALPRAZOLAM
     Dosage: 1 TB/DAY IF NECESSARY
     Route: 048
     Dates: start: 201906

REACTIONS (2)
  - Exposure during pregnancy [Recovered/Resolved]
  - Abortion spontaneous [Recovered/Resolved]

NARRATIVE: CASE EVENT DATE: 201905
